FAERS Safety Report 19064794 (Version 1)
Quarter: 2021Q1

REPORT INFORMATION
  Report Type: Spontaneous
  Country: CN (occurrence: CN)
  Receive Date: 20210326
  Receipt Date: 20210326
  Transmission Date: 20210420
  Serious: Yes (Life-Threatening, Hospitalization, Other)
  Sender: FDA-Public Use
  Company Number: CN-PURDUE-USA-2021-0237549

PATIENT
  Age: 76 Year
  Sex: Male
  Weight: 60 kg

DRUGS (2)
  1. MS CONTIN [Suspect]
     Active Substance: MORPHINE SULFATE
     Indication: ANALGESIC THERAPY
     Dosage: 60 MG, Q8H
     Route: 048
     Dates: start: 20210101, end: 20210112
  2. CEFTRIAXONE SODIUM. [Concomitant]
     Active Substance: CEFTRIAXONE SODIUM
     Indication: PNEUMONIA
     Dosage: 1 G, DAILY
     Route: 041
     Dates: start: 20210101, end: 20210112

REACTIONS (8)
  - Oedema peripheral [Unknown]
  - Respiratory depression [Not Recovered/Not Resolved]
  - Hypotension [Unknown]
  - Abdominal tenderness [Unknown]
  - Somnolence [Not Recovered/Not Resolved]
  - Decreased appetite [Unknown]
  - Tachycardia [Unknown]
  - Arrhythmia [Unknown]

NARRATIVE: CASE EVENT DATE: 20210103
